FAERS Safety Report 9769071 (Version 2)
Quarter: 2014Q1

REPORT INFORMATION
  Report Type: Report from Study
  Country: CA (occurrence: CA)
  Receive Date: 20131218
  Receipt Date: 20140129
  Transmission Date: 20141002
  Serious: Yes (Other)
  Sender: FDA-Public Use
  Company Number: CA-JNJFOC-20131208025

PATIENT
  Age: 73 Year
  Sex: Male
  Weight: 94 kg

DRUGS (27)
  1. REMICADE [Suspect]
     Indication: RHEUMATOID ARTHRITIS
     Dosage: 78TH INFUSION
     Route: 042
     Dates: start: 20140121
  2. REMICADE [Suspect]
     Indication: RHEUMATOID ARTHRITIS
     Dosage: ALSO REPORTED AS 30 MILLILITER
     Route: 042
     Dates: start: 20041108
  3. REMICADE [Suspect]
     Indication: RHEUMATOID ARTHRITIS
     Route: 042
     Dates: start: 20131210
  4. FISH OIL [Concomitant]
     Dosage: TO BE TAKEN IN THE MORNING
     Route: 065
     Dates: start: 200701
  5. METHOTREXATE [Concomitant]
     Indication: RHEUMATOID ARTHRITIS
     Dosage: DOSE: 50 UNITS NOT SPECIFIED
     Route: 065
     Dates: start: 1990
  6. METOPROLOL [Concomitant]
     Indication: CARDIAC DISORDER
     Dosage: COLOUR: PINK??TO BE TAKEN ONE IN THE MORNING AND ONE IN THE NIGHT.
     Route: 065
     Dates: start: 1990
  7. NORVASC [Concomitant]
     Indication: BLOOD PRESSURE
     Dosage: COLOUR: WHITE??\ONE IN THE MORNING AND ONE IN THE NIGHT
     Route: 065
     Dates: start: 1990, end: 20131025
  8. NORVASC [Concomitant]
     Indication: BLOOD PRESSURE
     Dosage: COLOUR: WHITE??TO BE TAKEN AT NIGHT
     Route: 065
     Dates: start: 20131025
  9. ENTROPHEN [Concomitant]
     Indication: CARDIAC DISORDER
     Dosage: COLOUR: BROWN??TO BE TAKEN IN THE MORNING
     Route: 065
     Dates: start: 1990
  10. SYNTHROID [Concomitant]
     Indication: THYROID DISORDER
     Dosage: COLOUR: GREEN
     Route: 065
     Dates: start: 1990, end: 20050701
  11. SYNTHROID [Concomitant]
     Indication: THYROID DISORDER
     Dosage: COLOUR: YELLOW, TO BE TAKEN IN THE MORNING
     Route: 065
     Dates: start: 20050701
  12. LIPITOR [Concomitant]
     Indication: HYPERLIPIDAEMIA
     Dosage: COLOUR: WHITE, TO BE TAKEN AT NIGHT
     Route: 065
     Dates: start: 200406
  13. ALTACE [Concomitant]
     Indication: BLOOD PRESSURE
     Dosage: COLOUR: BLUE/WHITE??TO BE TAKEN AT NIGHT
     Route: 065
     Dates: start: 20040520, end: 20130607
  14. HYDROCHLOROTHIAZIDE/RAMIPRIL [Concomitant]
     Indication: BLOOD PRESSURE
     Dosage: COLOUR: L-PINK.??TO BE TAKEN IN THE MORNING.??DOSE:10/25 MILLIGRAM
     Route: 065
     Dates: start: 20091017, end: 20130621
  15. CANDESARTAN CILEXETIL [Concomitant]
     Indication: BLOOD PRESSURE
     Dosage: COLOUR: L-PINK.??INTERVAL GIVEN AS 16 A.M AND 16 P.M
     Route: 065
     Dates: start: 20130707
  16. SPIRONOLACTONE [Concomitant]
     Indication: BLOOD PRESSURE
     Dosage: COLOUR: YELLOW.??TO BE TAKEN IN THE MORNING
     Route: 065
     Dates: start: 20131025
  17. GEN-GLYBE [Concomitant]
     Indication: DIABETES MELLITUS
     Dosage: COLOUR:WHITE.??TO BE TAKEN 2 IN THE MORNING AND 2 AT NIGHT
     Route: 065
     Dates: start: 20080122
  18. GEN-METFORMIN [Concomitant]
     Indication: DIABETES MELLITUS
     Dosage: COLOUR: WHITE.??TO BE TAKEN 2 IN MORNING AND 2 AT NIGHT
     Route: 065
     Dates: start: 20080122
  19. CELEBREX [Concomitant]
     Indication: RHEUMATOID ARTHRITIS
     Dosage: COLOUR: YELLOW/WHITE??WHEN NEEDED ONLY
     Route: 065
     Dates: start: 1998
  20. TOCOPHEROL [Concomitant]
     Indication: CARDIAC DISORDER
     Dosage: TO BE TAKEN AT NIGHT
     Route: 065
     Dates: start: 1990
  21. TOCOPHEROL [Concomitant]
     Indication: RHEUMATOID ARTHRITIS
     Dosage: TO BE TAKEN AT NIGHT
     Route: 065
     Dates: start: 1990
  22. VITAMIN D3 [Concomitant]
     Dosage: FOR IMMUNE, BONE, COLON, MUSCLE.??TO BE TAKEN IN THE MORNING
     Route: 065
     Dates: start: 200701
  23. CALCIUM CITRATE [Concomitant]
     Dosage: COLOUR: WHITE.??TO BE TAKEN IN THE MORNING
     Route: 065
     Dates: start: 200701
  24. VITAMIN C [Concomitant]
     Dosage: COLOUR: DARK YELLOW (WITH ROSE HIPS)??TO BE TAKEN AT NIGHT
     Route: 065
  25. CHLORTHALIDONE [Concomitant]
     Indication: BLOOD PRESSURE
     Dosage: COLOUR: PINK.??TO BE TAKEN AT MORNING
     Route: 065
     Dates: start: 20130707
  26. SOLUCORTEF [Concomitant]
     Indication: PREMEDICATION
     Route: 065
  27. FOLIC ACID [Concomitant]
     Dosage: COLOUR: YELLOW.??TO BE TAKEN AT MORNING
     Route: 065
     Dates: start: 1990

REACTIONS (10)
  - Liver injury [Not Recovered/Not Resolved]
  - Hypersensitivity [Recovering/Resolving]
  - Abasia [Recovering/Resolving]
  - Abdominal discomfort [Recovering/Resolving]
  - Asthenia [Recovering/Resolving]
  - Decreased appetite [Recovering/Resolving]
  - Back pain [Recovering/Resolving]
  - Infusion related reaction [Recovered/Resolved]
  - Sluggishness [Recovering/Resolving]
  - Hypersomnia [Unknown]
